FAERS Safety Report 7537108-8 (Version None)
Quarter: 2011Q2

REPORT INFORMATION
  Report Type: 
  Country: None (occurrence: None)
  Receive Date: 20110609
  Receipt Date: 20110531
  Transmission Date: 20111010
  Serious: Yes (Other)
  Sender: FDA-Public Use
  Company Number: PHFR2011GB03451

PATIENT
  Sex: Male

DRUGS (6)
  1. ZOPICLONE [Concomitant]
     Indication: INSOMNIA
     Dosage: 7.5 MG/DAY LONGSTANDING
     Route: 048
  2. THIAMINE [Concomitant]
     Indication: ALCOHOL ABUSE
     Dosage: 100 MG/DAY LONGSTANDING
     Route: 048
  3. CLOZAPINE [Suspect]
     Indication: SCHIZOPHRENIA
     Dosage: 500 MG/DAY
     Route: 048
  4. LANSOPRAZOLE [Concomitant]
     Indication: GASTRITIS
     Dosage: 30 MG/DAY LONGSTANDING
     Route: 048
  5. VITAMIN B COMPLEX CAP [Concomitant]
     Indication: ALCOHOL ABUSE
     Dosage: 3 DF, TID LONGSTANDING
     Route: 048
  6. KWELLS [Concomitant]
     Indication: NAUSEA
     Dosage: 1 DF, QD LONGSTANDING
     Route: 048

REACTIONS (1)
  - HEPATITIS C [None]
